FAERS Safety Report 9463098 (Version 1)
Quarter: 2013Q3

REPORT INFORMATION
  Report Type: Spontaneous
  Country: US (occurrence: US)
  Receive Date: 20130816
  Receipt Date: 20130816
  Transmission Date: 20140515
  Serious: Yes (Other)
  Sender: FDA-Public Use
  Company Number: CHPA2013US012778

PATIENT
  Age: 72 Year
  Sex: Female

DRUGS (2)
  1. EXCEDRIN EXTRA STRENGTH [Suspect]
     Indication: NEURALGIA
     Dosage: 1 DF, BID
     Route: 048
  2. EXCEDRIN EXTRA STRENGTH [Suspect]
     Indication: PAIN
     Dosage: 16 DF, QD
     Route: 048

REACTIONS (4)
  - Neuralgia [Unknown]
  - Drug ineffective for unapproved indication [Unknown]
  - Underdose [Unknown]
  - Prescribed overdose [Unknown]
